FAERS Safety Report 9887490 (Version 4)
Quarter: 2016Q2

REPORT INFORMATION
  Report Type: Spontaneous
  Country: GB (occurrence: GB)
  Receive Date: 20140211
  Receipt Date: 20160504
  Transmission Date: 20160815
  Serious: Yes (Other)
  Sender: FDA-Public Use
  Company Number: GB-ROCHE-1345757

PATIENT
  Sex: Female

DRUGS (1)
  1. HERCEPTIN [Suspect]
     Active Substance: TRASTUZUMAB
     Indication: PRODUCT USED FOR UNKNOWN INDICATION
     Dosage: 600 MG IN 5 ML, CYCLE 19, CYCLE 23, CYCLE 24, CYCLE 26, CYCLE 28
     Route: 058

REACTIONS (16)
  - Depressed mood [Unknown]
  - Lethargy [Unknown]
  - Lower respiratory tract infection [Unknown]
  - Nausea [Unknown]
  - Asthenia [Unknown]
  - Somnolence [Unknown]
  - Eye inflammation [Unknown]
  - Decreased appetite [Unknown]
  - Neoplasm [Unknown]
  - Cough [Unknown]
  - Fatigue [Unknown]
  - Pain [Unknown]
  - Muscle spasms [Unknown]
  - Sleep disorder [Unknown]
  - Insomnia [Unknown]
  - Nasopharyngitis [Unknown]

NARRATIVE: CASE EVENT DATE: 20160420
